FAERS Safety Report 11548838 (Version 1)
Quarter: 2015Q3

REPORT INFORMATION
  Report Type: Spontaneous
  Country: US (occurrence: US)
  Receive Date: 20150924
  Receipt Date: 20150924
  Transmission Date: 20151125
  Serious: No
  Sender: FDA-Public Use
  Company Number: US-INCYTE CORPORATION-2015IN002281

PATIENT
  Age: 79 Year
  Sex: Female

DRUGS (16)
  1. HYDROXYUREA. [Concomitant]
     Active Substance: HYDROXYUREA
  2. PLAQUENIL [Concomitant]
     Active Substance: HYDROXYCHLOROQUINE SULFATE
  3. FOLIC ACID. [Concomitant]
     Active Substance: FOLIC ACID
  4. CALCIUM [Concomitant]
     Active Substance: CALCIUM
  5. METHOTREXATE [Concomitant]
     Active Substance: METHOTREXATE
  6. ASPIRIN. [Concomitant]
     Active Substance: ASPIRIN
  7. CENTRUM SILVER                     /02363801/ [Concomitant]
     Active Substance: VITAMINS
  8. PROCRIT [Concomitant]
     Active Substance: ERYTHROPOIETIN
  9. POTASSIUM [Concomitant]
     Active Substance: POTASSIUM
  10. GLUCOSAMINE + CHONDROITIN [Concomitant]
     Active Substance: CHONDROITIN SULFATE (BOVINE)\GLUCOSAMINE HYDROCHLORIDE
  11. B-COMPLEX                          /00003501/ [Concomitant]
     Active Substance: CYANOCOBALAMIN\DEXPANTHENOL\NIACINAMIDE\PYRIDOXINE HYDROCHLORIDE\RIBOFLAVIN 5^-PHOSPHATE SODIUM\THIAMINE HYDROCHLORIDE\VITAMIN B COMPLEX
  12. CO Q 10                            /00517201/ [Concomitant]
  13. JAKAFI [Suspect]
     Active Substance: RUXOLITINIB
     Indication: MYELOFIBROSIS
     Dosage: 15 MG, BID
     Route: 048
     Dates: start: 20141106
  14. FUROSEMIDE. [Concomitant]
     Active Substance: FUROSEMIDE
  15. NEUPOGEN [Concomitant]
     Active Substance: FILGRASTIM
  16. RECLAST [Concomitant]
     Active Substance: ZOLEDRONIC ACID

REACTIONS (1)
  - Diplopia [Not Recovered/Not Resolved]

NARRATIVE: CASE EVENT DATE: 20150301
